FAERS Safety Report 23162024 (Version 1)
Quarter: 2023Q4

REPORT INFORMATION
  Report Type: Report from Study
  Country: BR (occurrence: BR)
  Receive Date: 20231109
  Receipt Date: 20231109
  Transmission Date: 20240110
  Serious: Yes (Other)
  Sender: FDA-Public Use
  Company Number: BR-002147023-NVSC2023BR237860

PATIENT
  Sex: Male

DRUGS (1)
  1. ENTRESTO [Suspect]
     Active Substance: SACUBITRIL\VALSARTAN
     Indication: Cardiomegaly
     Dosage: 100 MG, BID
     Route: 065

REACTIONS (7)
  - Acute respiratory failure [Unknown]
  - Insomnia [Unknown]
  - Eating disorder [Unknown]
  - Fear of eating [Unknown]
  - Fatigue [Unknown]
  - Cough [Unknown]
  - Product use in unapproved indication [Unknown]
